FAERS Safety Report 23472637 (Version 3)
Quarter: 2024Q1

REPORT INFORMATION
  Report Type: Spontaneous
  Country: PE (occurrence: PE)
  Receive Date: 20240202
  Receipt Date: 20240312
  Transmission Date: 20240410
  Serious: Yes (Hospitalization, Other)
  Sender: FDA-Public Use
  Company Number: PE-009507513-2401PER013984

PATIENT
  Age: 49 Year
  Sex: Female

DRUGS (4)
  1. KEYTRUDA [Suspect]
     Active Substance: PEMBROLIZUMAB
     Indication: Malignant melanoma
     Dosage: 200 MILLIGRAM
     Route: 042
     Dates: start: 20231228, end: 20240118
  2. KEYTRUDA [Suspect]
     Active Substance: PEMBROLIZUMAB
     Dosage: 200 MILLIGRAM
     Route: 042
     Dates: start: 20231112, end: 20231112
  3. KEYTRUDA [Suspect]
     Active Substance: PEMBROLIZUMAB
     Dosage: 200 MILLIGRAM
     Route: 042
     Dates: start: 20231211, end: 20231211
  4. KEYTRUDA [Suspect]
     Active Substance: PEMBROLIZUMAB
     Dosage: 200 MILLIGRAM
     Route: 042
     Dates: start: 20240108, end: 20240108

REACTIONS (14)
  - Carditis [Recovering/Resolving]
  - Back pain [Unknown]
  - Hypertension [Unknown]
  - Oxygen saturation decreased [Unknown]
  - Hyperlactacidaemia [Unknown]
  - Quadriparesis [Unknown]
  - Myocarditis [Unknown]
  - Tracheostomy [Unknown]
  - Ophthalmoplegia [Unknown]
  - Adverse event [Unknown]
  - Eyelid ptosis [Unknown]
  - Reflexes abnormal [Unknown]
  - Myopathy [Unknown]
  - Myositis [Unknown]

NARRATIVE: CASE EVENT DATE: 20240101
